FAERS Safety Report 19634460 (Version 1)
Quarter: 2021Q3

REPORT INFORMATION
  Report Type: Spontaneous
  Country: US (occurrence: US)
  Receive Date: 20210729
  Receipt Date: 20210729
  Transmission Date: 20211014
  Serious: No
  Sender: FDA-Public Use
  Company Number: US-PARATEK PHARMACEUTICALS, INC.-2021PTK00095

PATIENT
  Age: 63 Year
  Sex: Male

DRUGS (6)
  1. UNSPECIFIED MEDICATION FOR CANCER [Concomitant]
  2. TRESIBA [Concomitant]
     Active Substance: INSULIN DEGLUDEC
  3. NUZYRA [Suspect]
     Active Substance: OMADACYCLINE
     Indication: SKIN ULCER
     Dosage: 300 MG, 1X/DAY
     Route: 048
     Dates: start: 20210611, end: 202106
  4. HUMALOG [Concomitant]
     Active Substance: INSULIN LISPRO
  5. UNSPECIFIED MEDICATION FOR ANXIETY [Concomitant]
  6. UNSPECIFIED MEDICATION FOR DEPRESSION [Concomitant]

REACTIONS (5)
  - Anxiety [Recovered/Resolved]
  - Depression [Recovered/Resolved]
  - Movement disorder [Recovered/Resolved]
  - Feeling abnormal [Recovered/Resolved]
  - Incorrect dose administered [Recovered/Resolved]

NARRATIVE: CASE EVENT DATE: 20210611
